FAERS Safety Report 9266783 (Version 1)
Quarter: 2013Q2

REPORT INFORMATION
  Report Type: Spontaneous
  Country: US (occurrence: US)
  Receive Date: 20130502
  Receipt Date: 20130502
  Transmission Date: 20140414
  Serious: Yes (Other)
  Sender: FDA-Public Use
  Company Number: US-PFIZER INC-2013131748

PATIENT
  Age: 87 Year
  Sex: Female
  Weight: 53.52 kg

DRUGS (5)
  1. TOVIAZ [Suspect]
     Indication: MICTURITION URGENCY
     Dosage: 4 MG, 1X/DAY
     Dates: start: 2012
  2. GRALISE [Suspect]
     Indication: DIABETIC NEUROPATHY
     Dosage: 600 MG, 1X/DAY
     Dates: start: 2012
  3. JANUMET [Concomitant]
     Indication: DIABETES MELLITUS
     Dosage: 50/1000 MG, 2X/DAY
  4. SYNTHROID [Concomitant]
     Indication: HYPOTHYROIDISM
     Dosage: 75 UG, 1X/DAY
  5. ADVAIR HFA [Concomitant]
     Indication: BRONCHIECTASIS
     Dosage: UNK, 2X/DAY

REACTIONS (3)
  - Somnolence [Not Recovered/Not Resolved]
  - Disturbance in attention [Not Recovered/Not Resolved]
  - Memory impairment [Not Recovered/Not Resolved]
